FAERS Safety Report 4424845-7 (Version None)
Quarter: 2004Q3

REPORT INFORMATION
  Report Type: 
  Country: None (occurrence: None)
  Receive Date: 20040719
  Receipt Date: 20030708
  Transmission Date: 20050211
  Serious: Yes (Hospitalization)
  Sender: FDA-Public Use
  Company Number: 175460

PATIENT
  Sex: Female

DRUGS (4)
  1. AVONEX [Suspect]
     Indication: MULTIPLE SCLEROSIS
     Dates: end: 20030601
  2. ANTICONVULSANT (NOS) [Concomitant]
  3. LOTENSIN [Concomitant]
  4. TEGRETOL [Concomitant]

REACTIONS (2)
  - AMNESIA [None]
  - CONVULSION [None]
